FAERS Safety Report 6353066-6 (Version None)
Quarter: 2009Q3

REPORT INFORMATION
  Report Type: 
  Country: None (occurrence: None)
  Receive Date: 20090912
  Receipt Date: 20090622
  Transmission Date: 20100115
  Serious: No
  Sender: FDA-Public Use
  Company Number: US-ABBOTT-08P-163-0453497-00

PATIENT
  Sex: Female
  Weight: 89.892 kg

DRUGS (15)
  1. HUMIRA [Suspect]
     Indication: RHEUMATOID ARTHRITIS
     Route: 058
     Dates: start: 20070501
  2. METHOTREXATE [Concomitant]
     Indication: RHEUMATOID ARTHRITIS
     Route: 048
  3. CEVIMELINE HYDROCHLORIDE [Concomitant]
     Indication: DRY MOUTH
     Route: 048
     Dates: start: 20070101
  4. FOLIC ACID [Concomitant]
     Indication: VITAMIN SUPPLEMENTATION
     Route: 048
     Dates: start: 20080501
  5. FOLIC ACID [Concomitant]
     Route: 048
     Dates: end: 20080101
  6. ESOMEPRAZOLE MAGNESIUM [Concomitant]
     Indication: GASTROOESOPHAGEAL REFLUX DISEASE
     Route: 048
  7. LORAZEPAM [Concomitant]
     Indication: PANIC ATTACK
     Route: 048
  8. LORAZEPAM [Concomitant]
     Indication: ANXIETY
  9. PAROXETINE HCL [Concomitant]
     Indication: PANIC ATTACK
     Route: 048
  10. PAROXETINE HCL [Concomitant]
     Indication: ANXIETY
  11. CENTRUM SILVER [Concomitant]
     Indication: VITAMIN SUPPLEMENTATION
     Route: 048
  12. OSTEOCAL [Concomitant]
     Indication: MINERAL SUPPLEMENTATION
     Route: 048
  13. COLESEVELAM HYDROCHLORIDE [Concomitant]
     Indication: BLOOD CHOLESTEROL INCREASED
     Route: 048
     Dates: start: 20080401
  14. ALABERT [Concomitant]
     Indication: SEASONAL ALLERGY
     Route: 048
  15. MECLIZINE [Concomitant]
     Indication: VERTIGO
     Route: 048

REACTIONS (3)
  - DRUG DELIVERY SYSTEM MALFUNCTION [None]
  - INCORRECT DOSE ADMINISTERED [None]
  - INJECTION SITE HAEMATOMA [None]
